FAERS Safety Report 7321196-8 (Version None)
Quarter: 2011Q1

REPORT INFORMATION
  Report Type: 
  Country: None (occurrence: None)
  Receive Date: 20110228
  Receipt Date: 20110225
  Transmission Date: 20110831
  Serious: Yes (Death)
  Sender: FDA-Public Use
  Company Number: US-CEPHALON-2011000925

PATIENT
  Sex: Female

DRUGS (2)
  1. DURAGESIC-50 [Concomitant]
     Indication: CANCER PAIN
  2. FENTORA [Suspect]
     Indication: BREAKTHROUGH PAIN
     Route: 002

REACTIONS (1)
  - PANCREATIC CARCINOMA [None]
